FAERS Safety Report 19071237 (Version 2)
Quarter: 2021Q2

REPORT INFORMATION
  Report Type: Spontaneous
  Country: PL (occurrence: PL)
  Receive Date: 20210330
  Receipt Date: 20210507
  Transmission Date: 20210717
  Serious: Yes (Death, Other)
  Sender: FDA-Public Use
  Company Number: PL-AMGEN-POLSP2021045654

PATIENT
  Age: 19 Year
  Sex: Male

DRUGS (3)
  1. CYCLOPHOSPHAMIDE. [Concomitant]
     Active Substance: CYCLOPHOSPHAMIDE
     Dosage: UNK
  2. BLINCYTO [Suspect]
     Active Substance: BLINATUMOMAB
     Indication: B PRECURSOR TYPE ACUTE LEUKAEMIA
     Dosage: UNK
     Route: 065
     Dates: start: 201512
  3. BUSULFAN. [Concomitant]
     Active Substance: BUSULFAN
     Dosage: UNK

REACTIONS (2)
  - Leukaemic infiltration extramedullary [Unknown]
  - Death [Fatal]

NARRATIVE: CASE EVENT DATE: 2017
